FAERS Safety Report 10254003 (Version 1)
Quarter: 2014Q2

REPORT INFORMATION
  Report Type: Spontaneous
  Country: GB (occurrence: GB)
  Receive Date: 20140623
  Receipt Date: 20140623
  Transmission Date: 20141212
  Serious: Yes (Other)
  Sender: FDA-Public Use
  Company Number: GB-ABBVIE-14P-167-1251329-00

PATIENT
  Sex: Female

DRUGS (1)
  1. HUMIRA [Suspect]
     Indication: PRODUCT USED FOR UNKNOWN INDICATION
     Dates: start: 201312

REACTIONS (9)
  - Supraventricular extrasystoles [Unknown]
  - Palpitations [Unknown]
  - Butterfly rash [Unknown]
  - Pruritus [Unknown]
  - Burning sensation [Unknown]
  - Injection site erythema [Unknown]
  - Injection site swelling [Unknown]
  - Contusion [Unknown]
  - Depressed mood [Unknown]
